FAERS Safety Report 4365165-9 (Version None)
Quarter: 2004Q2

REPORT INFORMATION
  Report Type: 
  Country: None (occurrence: None)
  Receive Date: 20040525
  Receipt Date: 20040226
  Transmission Date: 20050107
  Serious: No
  Sender: FDA-Public Use
  Company Number: PHEH2004US02460

PATIENT
  Age: 42 Year
  Sex: Female
  Weight: 49.9 kg

DRUGS (6)
  1. ZELNORM [Suspect]
     Indication: IRRITABLE BOWEL SYNDROME
     Dosage: 6 MG QD ORAL
     Route: 048
     Dates: start: 20030722
  2. CELEXA [Concomitant]
  3. WELLBUTRIN [Concomitant]
  4. FAMVIR [Concomitant]
  5. ACYCLOVIR [Concomitant]
  6. HERBAL ONT [Concomitant]

REACTIONS (3)
  - CONSTIPATION [None]
  - DRUG INEFFECTIVE [None]
  - HERPES VIRUS INFECTION [None]
